FAERS Safety Report 20980884 (Version 2)
Quarter: 2022Q3

REPORT INFORMATION
  Report Type: Spontaneous
  Country: US (occurrence: US)
  Receive Date: 20220620
  Receipt Date: 20220725
  Transmission Date: 20221027
  Serious: Yes (Other)
  Sender: FDA-Public Use
  Company Number: US-BAYER-2022A081838

PATIENT
  Age: 29 Year
  Sex: Female

DRUGS (1)
  1. MIRENA [Suspect]
     Active Substance: LEVONORGESTREL
     Indication: Menstruation irregular
     Dosage: 20?G/DAY
     Route: 015
     Dates: start: 20190612, end: 20220609

REACTIONS (3)
  - Loop electrosurgical excision procedure [Recovered/Resolved]
  - Intra-uterine contraceptive device removal [Recovered/Resolved]
  - Off label use [None]

NARRATIVE: CASE EVENT DATE: 20220609
